FAERS Safety Report 8697244 (Version 2)
Quarter: 2012Q4

REPORT INFORMATION
  Report Type: Report from Study
  Country: DE (occurrence: DE)
  Receive Date: 20120801
  Receipt Date: 20121102
  Transmission Date: 20130627
  Serious: Yes (Death, Life-Threatening, Hospitalization, Other)
  Sender: FDA-Public Use
  Company Number: DE-ABBOTT-12P-062-0961774-00

PATIENT
  Age: 84 Year
  Weight: 78.5 kg

DRUGS (8)
  1. ZEMPLAR [Suspect]
     Indication: HYPERPARATHYROIDISM SECONDARY
     Dates: start: 20110315, end: 20110916
  2. KREON [Concomitant]
     Indication: PRODUCT USED FOR UNKNOWN INDICATION
     Dosage: 4 capsules a day
     Route: 048
     Dates: start: 20110709
  3. ASS [Concomitant]
     Indication: PRODUCT USED FOR UNKNOWN INDICATION
     Dosage: 100 mg /day
     Route: 048
     Dates: start: 20110709
  4. PANTOZOL [Concomitant]
     Indication: PRODUCT USED FOR UNKNOWN INDICATION
     Dosage: 40 mg /day
     Route: 048
     Dates: start: 20110709
  5. SIMVAHEXAL [Concomitant]
     Indication: PRODUCT USED FOR UNKNOWN INDICATION
     Dosage: 20 mg /day
     Route: 048
     Dates: start: 20110709
  6. FOSRENOL [Concomitant]
     Indication: PRODUCT USED FOR UNKNOWN INDICATION
     Route: 048
     Dates: start: 20110806
  7. FRRLECIT [Concomitant]
     Indication: PRODUCT USED FOR UNKNOWN INDICATION
  8. ERYPO [Concomitant]
     Indication: PRODUCT USED FOR UNKNOWN INDICATION
     Dosage: 6000 I.E. /week

REACTIONS (8)
  - Sudden cardiac death [Fatal]
  - General physical health deterioration [Fatal]
  - Dyspnoea exertional [Fatal]
  - Myocardial infarction [Recovered/Resolved]
  - Asthenia [Unknown]
  - Coronary artery disease [Unknown]
  - Fall [Recovered/Resolved]
  - Atrioventricular block [Unknown]
